FAERS Safety Report 4796567-4 (Version None)
Quarter: 2005Q3

REPORT INFORMATION
  Report Type: 
  Country: None (occurrence: None)
  Receive Date: 20050916
  Receipt Date: 20041223
  Transmission Date: 20060218
  Serious: Yes (Other)
  Sender: FDA-Public Use
  Company Number: US-JNJFOC-20041206931

PATIENT
  Age: 56 Year
  Sex: Female
  Weight: 61.2356 kg

DRUGS (6)
  1. TOPAMAX [Suspect]
     Indication: DEPRESSION
     Dosage: 200 MG, 2 IN 1 DAY, ORAL
     Route: 048
     Dates: start: 19990101
  2. ACIPHEX [Concomitant]
  3. ESTROGEN (ESTROGEN NOS) [Concomitant]
  4. ZANTAC [Concomitant]
  5. WELLBUTRIN [Concomitant]
  6. LORCET-HD [Concomitant]

REACTIONS (4)
  - ABDOMINAL PAIN UPPER [None]
  - CONSTIPATION [None]
  - DECREASED APPETITE [None]
  - WEIGHT DECREASED [None]
